FAERS Safety Report 23888491 (Version 2)
Quarter: 2024Q2

REPORT INFORMATION
  Report Type: Spontaneous
  Country: EG (occurrence: EG)
  Receive Date: 20240523
  Receipt Date: 20240523
  Transmission Date: 20240716
  Serious: Yes (Life-Threatening, Hospitalization, Other)
  Sender: FDA-Public Use
  Company Number: EG-PFIZER INC-PV202400066349

PATIENT
  Age: 13 Day
  Sex: Male

DRUGS (45)
  1. MEROPENEM [Suspect]
     Active Substance: MEROPENEM
     Indication: Neonatal respiratory distress syndrome
     Dosage: UNK
     Dates: start: 20240402, end: 20240420
  2. MEROPENEM [Suspect]
     Active Substance: MEROPENEM
     Indication: Cleft palate
  3. MEROPENEM [Suspect]
     Active Substance: MEROPENEM
     Indication: Sepsis
  4. MAXIPIME [Suspect]
     Active Substance: CEFEPIME HYDROCHLORIDE
     Indication: Neonatal respiratory distress syndrome
     Dosage: UNK
     Dates: start: 20240426, end: 20240428
  5. MAXIPIME [Suspect]
     Active Substance: CEFEPIME HYDROCHLORIDE
     Indication: Cleft palate
  6. MAXIPIME [Suspect]
     Active Substance: CEFEPIME HYDROCHLORIDE
     Indication: Sepsis
  7. LINEZOLID [Suspect]
     Active Substance: LINEZOLID
     Indication: Neonatal respiratory distress syndrome
     Dosage: UNK
     Route: 042
     Dates: start: 20240421, end: 20240426
  8. LINEZOLID [Suspect]
     Active Substance: LINEZOLID
     Indication: Cleft palate
  9. LINEZOLID [Suspect]
     Active Substance: LINEZOLID
     Indication: Sepsis
  10. TIGECYCLINE [Suspect]
     Active Substance: TIGECYCLINE
     Indication: Neonatal respiratory distress syndrome
     Dosage: UNK
     Dates: start: 20240429, end: 202405
  11. TIGECYCLINE [Suspect]
     Active Substance: TIGECYCLINE
     Indication: Cleft palate
  12. TIGECYCLINE [Suspect]
     Active Substance: TIGECYCLINE
     Indication: Sepsis
  13. VANCOMYCIN [Suspect]
     Active Substance: VANCOMYCIN
     Dosage: UNK
     Dates: start: 20240402, end: 20240503
  14. AMIKACIN [Suspect]
     Active Substance: AMIKACIN
     Indication: Neonatal respiratory distress syndrome
     Dosage: UNK
     Route: 042
     Dates: start: 20240421, end: 20240426
  15. AMIKACIN [Suspect]
     Active Substance: AMIKACIN
     Indication: Cleft palate
  16. AMIKACIN [Suspect]
     Active Substance: AMIKACIN
     Indication: Sepsis
  17. UNICTAM [AMPICILLIN SODIUM;SULBACTAM SODIUM] [Concomitant]
     Dosage: UNK
     Dates: start: 20240329, end: 20240402
  18. CEFOTAXIME [Concomitant]
     Active Substance: CEFOTAXIME SODIUM
     Dosage: UNK
     Dates: start: 20240329, end: 20240402
  19. DIFLUCAN [Concomitant]
     Active Substance: FLUCONAZOLE
     Indication: Neonatal respiratory distress syndrome
     Dosage: UNK
     Dates: start: 20240504, end: 202405
  20. DIFLUCAN [Concomitant]
     Active Substance: FLUCONAZOLE
     Indication: Cleft palate
  21. DIFLUCAN [Concomitant]
     Active Substance: FLUCONAZOLE
     Indication: Sepsis
  22. EPINEPHRINE [Concomitant]
     Active Substance: EPINEPHRINE
     Indication: Neonatal respiratory distress syndrome
  23. EPINEPHRINE [Concomitant]
     Active Substance: EPINEPHRINE
     Indication: Cleft palate
  24. EPINEPHRINE [Concomitant]
     Active Substance: EPINEPHRINE
     Indication: Sepsis
  25. DEXAMETHASONE [Concomitant]
     Active Substance: DEXAMETHASONE
     Indication: Neonatal respiratory distress syndrome
  26. DEXAMETHASONE [Concomitant]
     Active Substance: DEXAMETHASONE
     Indication: Cleft palate
  27. DEXAMETHASONE [Concomitant]
     Active Substance: DEXAMETHASONE
     Indication: Sepsis
  28. PULMICORT TURBUHALER [Concomitant]
     Active Substance: BUDESONIDE
     Indication: Neonatal respiratory distress syndrome
  29. PULMICORT TURBUHALER [Concomitant]
     Active Substance: BUDESONIDE
     Indication: Cleft palate
  30. PULMICORT TURBUHALER [Concomitant]
     Active Substance: BUDESONIDE
     Indication: Sepsis
  31. MIDAZOLAM HYDROCHLORIDE [Concomitant]
     Active Substance: MIDAZOLAM HYDROCHLORIDE
     Indication: Neonatal respiratory distress syndrome
  32. MIDAZOLAM HYDROCHLORIDE [Concomitant]
     Active Substance: MIDAZOLAM HYDROCHLORIDE
     Indication: Cleft palate
  33. MIDAZOLAM HYDROCHLORIDE [Concomitant]
     Active Substance: MIDAZOLAM HYDROCHLORIDE
     Indication: Sepsis
  34. CIPROFLOXACIN HYDROCHLORIDE [Concomitant]
     Active Substance: CIPROFLOXACIN HYDROCHLORIDE
     Indication: Neonatal respiratory distress syndrome
  35. CIPROFLOXACIN HYDROCHLORIDE [Concomitant]
     Active Substance: CIPROFLOXACIN HYDROCHLORIDE
     Indication: Cleft palate
  36. CIPROFLOXACIN HYDROCHLORIDE [Concomitant]
     Active Substance: CIPROFLOXACIN HYDROCHLORIDE
     Indication: Sepsis
  37. ATROVENT [Concomitant]
     Active Substance: IPRATROPIUM BROMIDE
     Indication: Neonatal respiratory distress syndrome
  38. ATROVENT [Concomitant]
     Active Substance: IPRATROPIUM BROMIDE
     Indication: Cleft palate
  39. ATROVENT [Concomitant]
     Active Substance: IPRATROPIUM BROMIDE
     Indication: Sepsis
  40. CALCIUM GLUCONATE [Concomitant]
     Active Substance: CALCIUM GLUCONATE
     Indication: Neonatal respiratory distress syndrome
     Route: 042
  41. CALCIUM GLUCONATE [Concomitant]
     Active Substance: CALCIUM GLUCONATE
     Indication: Cleft palate
  42. CALCIUM GLUCONATE [Concomitant]
     Active Substance: CALCIUM GLUCONATE
     Indication: Sepsis
  43. LASIX [Concomitant]
     Active Substance: FUROSEMIDE
     Indication: Neonatal respiratory distress syndrome
  44. LASIX [Concomitant]
     Active Substance: FUROSEMIDE
     Indication: Cleft palate
  45. LASIX [Concomitant]
     Active Substance: FUROSEMIDE
     Indication: Sepsis

REACTIONS (3)
  - Off label use [Unknown]
  - Product use issue [Unknown]
  - Thrombocytopenia neonatal [Not Recovered/Not Resolved]

NARRATIVE: CASE EVENT DATE: 20240402
